FAERS Safety Report 18635956 (Version 2)
Quarter: 2021Q1

REPORT INFORMATION
  Report Type: Spontaneous
  Country: BE (occurrence: BE)
  Receive Date: 20201218
  Receipt Date: 20210111
  Transmission Date: 20210419
  Serious: Yes (Death)
  Sender: FDA-Public Use
  Company Number: BE-ROCHE-2731093

PATIENT
  Sex: Female
  Weight: 75 kg

DRUGS (10)
  1. SOLU?MEDROL [Concomitant]
     Active Substance: METHYLPREDNISOLONE SODIUM SUCCINATE
     Dosage: FOR 3 DAYS
     Route: 048
  2. LIPITOR [Concomitant]
     Active Substance: ATORVASTATIN CALCIUM
     Dosage: EVENING: 1 TAB
     Route: 048
  3. BISOPROLOL TEVA [Concomitant]
     Active Substance: BISOPROLOL
     Dosage: MORNING: 1 TAB
     Route: 048
  4. ASAFLOW [Concomitant]
     Active Substance: ASPIRIN
     Dosage: MORNING: 1 TAB
     Route: 048
  5. PRAZEPAM [Concomitant]
     Active Substance: PRAZEPAM
     Dosage: 20 ML 15 MG/ML ?EVENING: 15 GTTE(S)
  6. L?THYROXINE [Concomitant]
     Active Substance: LEVOTHYROXINE
     Dosage: MORNING: 1 TAB
     Route: 048
  7. DAFALGAN FORTE [Concomitant]
     Dosage: 1 GR EVENING: 1 TAB
     Route: 048
  8. OCREVUS [Suspect]
     Active Substance: OCRELIZUMAB
     Indication: PRODUCT USED FOR UNKNOWN INDICATION
     Route: 065
     Dates: start: 201806, end: 202006
  9. PANTOMED (BELGIUM) [Concomitant]
     Active Substance: PANTOPRAZOLE SODIUM
     Dosage: MORNING: 1 TAB
     Route: 048
  10. ZESTRIL [Concomitant]
     Active Substance: LISINOPRIL
     Dosage: EVENING: 0.5 TAB
     Route: 048

REACTIONS (2)
  - Hypoxia [Fatal]
  - COVID-19 [Fatal]
